FAERS Safety Report 7399276-0 (Version None)
Quarter: 2011Q2

REPORT INFORMATION
  Report Type: 
  Country: None (occurrence: None)
  Receive Date: 20110407
  Receipt Date: 20110403
  Transmission Date: 20111010
  Serious: No
  Sender: FDA-Public Use
  Company Number: US-PFIZER INC-2011073410

PATIENT
  Sex: Male

DRUGS (1)
  1. ADVIL LIQUI-GELS [Suspect]
     Dosage: UNK
     Route: 048

REACTIONS (2)
  - PRODUCT QUALITY ISSUE [None]
  - ORAL DISCOMFORT [None]
